FAERS Safety Report 15880986 (Version 1)
Quarter: 2019Q1

REPORT INFORMATION
  Report Type: Spontaneous
  Country: IT (occurrence: IT)
  Receive Date: 20190128
  Receipt Date: 20190128
  Transmission Date: 20190417
  Serious: Yes (Other)
  Sender: FDA-Public Use
  Company Number: IT-MYLANLABS-2019M1007053

PATIENT
  Age: 48 Year
  Sex: Female

DRUGS (3)
  1. IDARUBICIN [Suspect]
     Active Substance: IDARUBICIN
     Indication: ACUTE MYELOMONOCYTIC LEUKAEMIA
     Dosage: UNK
     Route: 065
  2. NOREPINEPHRINE. [Concomitant]
     Active Substance: NOREPINEPHRINE
     Indication: BLOOD PRESSURE DECREASED
     Dosage: UNK
     Route: 065
  3. CYTARABINE. [Suspect]
     Active Substance: CYTARABINE
     Indication: ACUTE MYELOMONOCYTIC LEUKAEMIA
     Dosage: UNK
     Route: 065

REACTIONS (9)
  - Bone marrow failure [Recovering/Resolving]
  - Metabolic acidosis [Unknown]
  - Burkholderia infection [Recovering/Resolving]
  - Pyrexia [Recovering/Resolving]
  - Tachypnoea [Unknown]
  - Tachycardia [Unknown]
  - Hypotension [Unknown]
  - Hyperlactacidaemia [Unknown]
  - Anuria [Unknown]
